FAERS Safety Report 4766387-5 (Version None)
Quarter: 2005Q3

REPORT INFORMATION
  Report Type: 
  Country: None (occurrence: None)
  Receive Date: 20050909
  Receipt Date: 20050826
  Transmission Date: 20060218
  Serious: Yes (Hospitalization)
  Sender: FDA-Public Use
  Company Number: SUS1-2005-00614

PATIENT
  Age: 35 Year
  Sex: Female

DRUGS (3)
  1. PENTASA [Suspect]
     Indication: CROHN'S DISEASE
     Dosage: SEE IMAGE
     Route: 048
     Dates: start: 20050727, end: 20070727
  2. PENTASA [Suspect]
     Indication: CROHN'S DISEASE
     Dosage: SEE IMAGE
     Route: 048
     Dates: start: 20020101
  3. PL GRAN (CAFFEINE, PROMETHAZINE METHYLENE DISALICLATE, SALICYLAMIDE) [Suspect]
     Indication: NASOPHARYNGITIS
     Dosage: SEE IMAGE
     Route: 048
     Dates: start: 20050727, end: 20050727

REACTIONS (6)
  - DIARRHOEA [None]
  - HYPOAESTHESIA [None]
  - HYPOKALAEMIA [None]
  - MULTIPLE DRUG OVERDOSE [None]
  - PYREXIA [None]
  - SUICIDE ATTEMPT [None]
